FAERS Safety Report 4912040-4 (Version None)
Quarter: 2006Q1

REPORT INFORMATION
  Report Type: 
  Country: None (occurrence: None)
  Receive Date: 20060215
  Receipt Date: 20051020
  Transmission Date: 20060701
  Serious: Yes (Other)
  Sender: FDA-Public Use
  Company Number: 2005AC01659

PATIENT
  Age: 924 Month
  Sex: Male
  Weight: 68.5 kg

DRUGS (7)
  1. ROSUVASTATIN [Suspect]
     Indication: PROPHYLAXIS
     Route: 048
     Dates: start: 20050726
  2. VIDISIC EYE GEL [Concomitant]
     Indication: DRY EYE
     Route: 047
     Dates: start: 19920701
  3. LACTULOSE [Concomitant]
     Indication: CONSTIPATION
     Route: 048
     Dates: start: 19920101
  4. GLUCOSAMINE [Concomitant]
     Indication: ARTHRALGIA
     Route: 048
     Dates: start: 20040101
  5. GLUCOSAMINE [Concomitant]
     Indication: OSTEOARTHRITIS
     Route: 048
     Dates: start: 20040101
  6. MULTIVITAMIN [Concomitant]
     Indication: MEDICAL DIET
     Dosage: CONTAINING 18 MG NIACIN
     Route: 048
  7. MULTIVITAMIN [Concomitant]
     Dosage: CONTAINING 18 MG NIACIN
     Route: 048

REACTIONS (2)
  - POLYNEUROPATHY [None]
  - TREMOR [None]
